FAERS Safety Report 8278562-6 (Version None)
Quarter: 2012Q2

REPORT INFORMATION
  Report Type: 
  Country: None (occurrence: None)
  Receive Date: 20120412
  Receipt Date: 20110930
  Transmission Date: 20120825
  Serious: No
  Sender: FDA-Public Use
  Company Number: US-ASTRAZENECA-2011SE44143

PATIENT
  Age: 56 Year
  Sex: Female
  Weight: 104.6 kg

DRUGS (12)
  1. METFORMIN HCL [Concomitant]
  2. HYDROXYZINE [Concomitant]
  3. METOPROLOL TARTRATE [Concomitant]
  4. SIMVASTATIN [Concomitant]
  5. VESICANE [Concomitant]
  6. LISINOPRIL AND HYDROCHLOROTHIAZIDE [Concomitant]
  7. NASONEX [Concomitant]
  8. NEURONTIN [Concomitant]
  9. NEXIUM [Suspect]
     Indication: GASTROOESOPHAGEAL REFLUX DISEASE
     Route: 048
  10. CITALOPRAM HYDROBROMIDE [Concomitant]
  11. CUNZITIN [Concomitant]
  12. MEZEHCIT [Concomitant]

REACTIONS (2)
  - MEMORY IMPAIRMENT [None]
  - GASTROOESOPHAGEAL REFLUX DISEASE [None]
